FAERS Safety Report 5784276-4 (Version None)
Quarter: 2008Q2

REPORT INFORMATION
  Report Type: 
  Country: None (occurrence: None)
  Receive Date: 20080620
  Receipt Date: 20080620
  Transmission Date: 20081010
  Serious: Yes (Other)
  Sender: FDA-Public Use
  Company Number: None

PATIENT
  Age: 23 Year
  Sex: Female
  Weight: 117.9352 kg

DRUGS (1)
  1. NUVARING [Suspect]

REACTIONS (6)
  - AFFECT LABILITY [None]
  - EMOTIONAL DISORDER [None]
  - FEELING ABNORMAL [None]
  - MENORRHAGIA [None]
  - MENSTRUATION IRREGULAR [None]
  - MOOD ALTERED [None]
